FAERS Safety Report 21541092 (Version 2)
Quarter: 2022Q4

REPORT INFORMATION
  Report Type: Report from Study
  Country: BR (occurrence: BR)
  Receive Date: 20221102
  Receipt Date: 20221206
  Transmission Date: 20230113
  Serious: Yes (Other)
  Sender: FDA-Public Use
  Company Number: BR-NOVARTISPH-NVSC2022BR230403

PATIENT
  Age: 66 Year
  Sex: Female

DRUGS (2)
  1. KISQALI [Suspect]
     Active Substance: RIBOCICLIB
     Indication: Product used for unknown indication
     Dosage: 3 UNK, QD
     Route: 065
  2. LETROZOLE [Suspect]
     Active Substance: LETROZOLE
     Indication: Product used for unknown indication
     Dosage: 1 DOSAGE FORM, QD
     Route: 065
     Dates: start: 20220605

REACTIONS (21)
  - Diabetes mellitus [Unknown]
  - Metastases to bone [Unknown]
  - Fracture [Recovered/Resolved]
  - Gait disturbance [Recovered/Resolved]
  - Procedural pain [Recovering/Resolving]
  - Discomfort [Recovering/Resolving]
  - Visual impairment [Not Recovered/Not Resolved]
  - Feeling cold [Recovered/Resolved]
  - Pain [Recovered/Resolved]
  - Gait inability [Recovered/Resolved]
  - Parosmia [Unknown]
  - Retching [Recovered/Resolved]
  - Breast disorder [Recovering/Resolving]
  - Weight decreased [Unknown]
  - Blood glucose increased [Unknown]
  - Nausea [Recovered/Resolved]
  - Nausea [Unknown]
  - Back pain [Unknown]
  - Pyrexia [Recovered/Resolved]
  - Diarrhoea [Recovered/Resolved]
  - Vomiting [Unknown]

NARRATIVE: CASE EVENT DATE: 20221015
